FAERS Safety Report 26152812 (Version 1)
Quarter: 2025Q4

REPORT INFORMATION
  Report Type: Spontaneous
  Country: AU (occurrence: AU)
  Receive Date: 20251214
  Receipt Date: 20251214
  Transmission Date: 20260117
  Serious: Yes (Other)
  Sender: ABBVIE
  Company Number: AU-ABBVIE-6585820

PATIENT

DRUGS (1)
  1. ADALIMUMAB [Suspect]
     Active Substance: ADALIMUMAB
     Indication: Product used for unknown indication
     Dosage: DOSE FORM: UNKNOWN
     Route: 058

REACTIONS (3)
  - Neuropathy peripheral [Unknown]
  - Paraesthesia [Unknown]
  - Hypoaesthesia [Unknown]
